FAERS Safety Report 10256012 (Version 1)
Quarter: 2014Q2

REPORT INFORMATION
  Report Type: Spontaneous
  Country: DE (occurrence: DE)
  Receive Date: 20140624
  Receipt Date: 20140624
  Transmission Date: 20141212
  Serious: Yes (Congenital Anomaly)
  Sender: FDA-Public Use
  Company Number: DE-GLAXOSMITHKLINE-D0084451A

PATIENT
  Sex: Female
  Weight: 2.7 kg

DRUGS (4)
  1. RANITIDINE [Suspect]
     Indication: DYSPEPSIA
     Route: 064
  2. PANTOPRAZOL [Suspect]
     Indication: DYSPEPSIA
     Dosage: 20MG AS REQUIRED
     Route: 064
     Dates: end: 20140115
  3. VITAMIN B [Concomitant]
     Indication: PROPHYLAXIS OF NEURAL TUBE DEFECT
     Dosage: .4MG PER DAY
     Route: 064
  4. FOLIC ACID [Concomitant]
     Indication: PROPHYLAXIS OF NEURAL TUBE DEFECT
     Dosage: .4MG PER DAY
     Route: 064

REACTIONS (1)
  - Haemangioma congenital [Unknown]
